FAERS Safety Report 14394351 (Version 3)
Quarter: 2018Q2

REPORT INFORMATION
  Report Type: Spontaneous
  Country: IT (occurrence: IT)
  Receive Date: 20180116
  Receipt Date: 20180419
  Transmission Date: 20180711
  Serious: Yes (Other)
  Sender: FDA-Public Use
  Company Number: IT-ELI_LILLY_AND_COMPANY-IT201801005211

PATIENT
  Age: 71 Year
  Sex: Female
  Weight: 66 kg

DRUGS (3)
  1. METFORMIN [Concomitant]
     Active Substance: METFORMIN HYDROCHLORIDE
     Indication: TYPE 2 DIABETES MELLITUS
     Dosage: 2550 MG, UNKNOWN
     Route: 048
  2. ABASAGLAR [Suspect]
     Active Substance: INSULIN GLARGINE
     Indication: TYPE 2 DIABETES MELLITUS
     Dosage: 23 DF, DAILY
     Route: 058
     Dates: start: 20171210, end: 20171216
  3. APIDRA [Concomitant]
     Active Substance: INSULIN GLULISINE
     Indication: TYPE 2 DIABETES MELLITUS
     Dosage: 14 DF, UNKNOWN
     Route: 058

REACTIONS (8)
  - Malaise [Recovering/Resolving]
  - Tongue oedema [Recovering/Resolving]
  - Eyelid oedema [Recovering/Resolving]
  - Pruritus [Recovering/Resolving]
  - Face oedema [Recovering/Resolving]
  - Dyspnoea [Recovering/Resolving]
  - Oedema peripheral [Recovering/Resolving]
  - Erythema [Recovering/Resolving]

NARRATIVE: CASE EVENT DATE: 20171215
